FAERS Safety Report 12678734 (Version 2)
Quarter: 2016Q3

REPORT INFORMATION
  Report Type: Spontaneous
  Country: US (occurrence: US)
  Receive Date: 20160824
  Receipt Date: 20160907
  Transmission Date: 20161109
  Serious: No
  Sender: FDA-Public Use
  Company Number: US-ASTRAZENECA-2016SE89959

PATIENT
  Age: 16973 Day
  Sex: Female
  Weight: 69.4 kg

DRUGS (1)
  1. ZOLADEX [Suspect]
     Active Substance: GOSERELIN ACETATE
     Indication: BREAST CANCER FEMALE
     Route: 058
     Dates: start: 20160424

REACTIONS (3)
  - Drug administration error [Unknown]
  - Injection site extravasation [Unknown]
  - Product quality issue [Unknown]

NARRATIVE: CASE EVENT DATE: 20160817
